FAERS Safety Report 6097564-1 (Version None)
Quarter: 2009Q1

REPORT INFORMATION
  Report Type: 
  Country: None (occurrence: None)
  Receive Date: 20090227
  Receipt Date: 20081112
  Transmission Date: 20090719
  Serious: No
  Sender: FDA-Public Use
  Company Number: A0756306A

PATIENT

DRUGS (2)
  1. IMITREX [Suspect]
     Indication: DRUG USE FOR UNKNOWN INDICATION
  2. GSK AUTOINJECTOR [Suspect]
     Indication: DRUG USE FOR UNKNOWN INDICATION

REACTIONS (3)
  - DRUG INEFFECTIVE [None]
  - HEADACHE [None]
  - PRODUCT QUALITY ISSUE [None]
